FAERS Safety Report 23332392 (Version 4)
Quarter: 2025Q1

REPORT INFORMATION
  Report Type: Spontaneous
  Country: CA (occurrence: CA)
  Receive Date: 20231222
  Receipt Date: 20250310
  Transmission Date: 20250409
  Serious: Yes (Hospitalization, Other)
  Sender: TAKEDA
  Company Number: CA-LUNDBECK-DKLU3071664

PATIENT
  Age: 65 Year
  Sex: Female

DRUGS (35)
  1. VORTIOXETINE [Suspect]
     Active Substance: VORTIOXETINE
     Indication: Depression
     Dosage: 10 MILLIGRAM, QD
  2. VORTIOXETINE [Suspect]
     Active Substance: VORTIOXETINE
  3. PANTOPRAZOLE SODIUM [Suspect]
     Active Substance: PANTOPRAZOLE SODIUM
     Indication: Product used for unknown indication
     Dosage: 40 MILLIGRAM, QD
     Dates: start: 202011
  4. PANTOPRAZOLE SODIUM [Suspect]
     Active Substance: PANTOPRAZOLE SODIUM
  5. PANTOPRAZOLE SODIUM [Suspect]
     Active Substance: PANTOPRAZOLE SODIUM
     Dosage: 40 MILLIGRAM, QD
  6. PANTOPRAZOLE SODIUM [Suspect]
     Active Substance: PANTOPRAZOLE SODIUM
     Dosage: 40 MILLIGRAM, QD
  7. VENLAFAXINE HYDROCHLORIDE [Suspect]
     Active Substance: VENLAFAXINE HYDROCHLORIDE
     Indication: Depression
  8. ESCITALOPRAM OXALATE [Suspect]
     Active Substance: ESCITALOPRAM OXALATE
     Indication: Depression
  9. BREXPIPRAZOLE [Suspect]
     Active Substance: BREXPIPRAZOLE
     Indication: Depression
  10. FLUOXETINE HYDROCHLORIDE [Suspect]
     Active Substance: FLUOXETINE HYDROCHLORIDE
     Indication: Depression
  11. FLUVOXAMINE MALEATE [Suspect]
     Active Substance: FLUVOXAMINE MALEATE
     Indication: Depression
  12. PAROXETINE [Suspect]
     Active Substance: PAROXETINE
     Indication: Depression
  13. CLOMIPRAMINE [Suspect]
     Active Substance: CLOMIPRAMINE
     Indication: Depression
  14. MIRTAZAPINE [Suspect]
     Active Substance: MIRTAZAPINE
     Indication: Depression
  15. OLANZAPINE [Suspect]
     Active Substance: OLANZAPINE
     Indication: Depression
  16. QUETIAPINE [Suspect]
     Active Substance: QUETIAPINE
     Indication: Depression
  17. RISPERIDONE [Suspect]
     Active Substance: RISPERIDONE
     Indication: Depression
  18. ZOLPIDEM [Suspect]
     Active Substance: ZOLPIDEM TARTRATE
     Indication: Depression
  19. ZOPICLONE [Suspect]
     Active Substance: ZOPICLONE
     Indication: Depression
  20. LORAZEPAM [Suspect]
     Active Substance: LORAZEPAM
     Indication: Depression
  21. LEVOMEPROMAZINE [Suspect]
     Active Substance: LEVOMEPROMAZINE
     Indication: Depression
  22. GABAPENTIN [Suspect]
     Active Substance: GABAPENTIN
     Indication: Depression
  23. CANNABIS SATIVA SUBSP. INDICA TOP [Suspect]
     Active Substance: CANNABIS SATIVA SUBSP. INDICA TOP
     Indication: Insomnia
  24. BUPROPION [Suspect]
     Active Substance: BUPROPION
     Indication: Depression
     Dosage: 400 MILLIGRAM, QD
     Dates: start: 202011
  25. BUPROPION [Suspect]
     Active Substance: BUPROPION
  26. PRAMIPEXOLE [Suspect]
     Active Substance: PRAMIPEXOLE
     Indication: Product used for unknown indication
     Dosage: 0.25 MILLIGRAM, BID
     Dates: start: 202011
  27. PRAMIPEXOLE [Suspect]
     Active Substance: PRAMIPEXOLE
     Dosage: 0.5 MILLIGRAM, BID
  28. APIXABAN [Suspect]
     Active Substance: APIXABAN
     Indication: Depression
     Dosage: 5 MILLIGRAM, BID
     Dates: start: 202011
  29. LEMBOREXANT [Suspect]
     Active Substance: LEMBOREXANT
     Indication: Depression
  30. LEMBOREXANT [Suspect]
     Active Substance: LEMBOREXANT
  31. LAMOTRIGINE [Suspect]
     Active Substance: LAMOTRIGINE
     Indication: Product used for unknown indication
     Dosage: 300 MILLIGRAM, QD
  32. LEVOMEPROMAZINE MALEATE [Suspect]
     Active Substance: LEVOMEPROMAZINE MALEATE
     Indication: Depression
  33. LEVOMEPROMAZINE MALEATE [Suspect]
     Active Substance: LEVOMEPROMAZINE MALEATE
  34. LURASIDONE HYDROCHLORIDE [Suspect]
     Active Substance: LURASIDONE HYDROCHLORIDE
     Indication: Product used for unknown indication
     Dosage: 20 MILLIGRAM, QD
  35. LURASIDONE HYDROCHLORIDE [Suspect]
     Active Substance: LURASIDONE HYDROCHLORIDE
     Dosage: 40 MILLIGRAM, QD

REACTIONS (5)
  - Suicidal ideation [Recovered/Resolved]
  - Suicide attempt [Recovered/Resolved]
  - Condition aggravated [Recovered/Resolved]
  - Drug ineffective [Recovered/Resolved]
  - Adverse drug reaction [Unknown]
